FAERS Safety Report 9121175 (Version 3)
Quarter: 2013Q1

REPORT INFORMATION
  Report Type: Report from Study
  Country: DE (occurrence: DE)
  Receive Date: 20130225
  Receipt Date: 20130319
  Transmission Date: 20140127
  Serious: Yes (Hospitalization)
  Sender: FDA-Public Use
  Company Number: DE-PFIZER INC-2012275948

PATIENT
  Age: 73 Year
  Sex: Female
  Weight: 63 kg

DRUGS (4)
  1. SOMAVERT [Suspect]
     Indication: ACROMEGALY
     Dosage: 15 MG DAILY, 7 INJECTIONS/WEEK
     Dates: start: 20100512, end: 201110
  2. HCT ^CT-ARZNEIMITTEL^ [Concomitant]
     Indication: HYPERTENSION
     Dosage: UNK
     Route: 048
     Dates: start: 19990412
  3. IRBESARTAN [Concomitant]
     Indication: HYPERTENSION
     Dosage: UNK
     Route: 048
     Dates: start: 19990412
  4. HYDROCORTISONE [Concomitant]
     Dosage: UNK
     Route: 048
     Dates: start: 1992

REACTIONS (1)
  - Ventricular arrhythmia [Recovered/Resolved]
